FAERS Safety Report 17317249 (Version 2)
Quarter: 2020Q1

REPORT INFORMATION
  Report Type: Spontaneous
  Country: US (occurrence: US)
  Receive Date: 20200124
  Receipt Date: 20200309
  Transmission Date: 20200409
  Serious: No
  Sender: FDA-Public Use
  Company Number: US-PFIZER INC-2020027363

PATIENT
  Age: 13 Year
  Sex: Male

DRUGS (1)
  1. GENOTROPIN [Suspect]
     Active Substance: SOMATROPIN
     Dosage: 1.6 MG, UNK
     Dates: start: 20200115

REACTIONS (4)
  - Incorrect dose administered [Unknown]
  - Administration site pain [Unknown]
  - Device leakage [Unknown]
  - Product dose omission [Unknown]
